FAERS Safety Report 15015421 (Version 2)
Quarter: 2019Q4

REPORT INFORMATION
  Report Type: Spontaneous
  Country: None (occurrence: NO)
  Receive Date: 20180615
  Receipt Date: 20191007
  Transmission Date: 20200122
  Serious: Yes (Death, Other)
  Sender: FDA-Public Use
  Company Number: NO-GLAXOSMITHKLINE-NO2018GSK107115

PATIENT
  Age: 81 Year
  Sex: Male

DRUGS (7)
  1. EUCREAS [Concomitant]
     Active Substance: METFORMIN HYDROCHLORIDE\VILDAGLIPTIN
     Indication: PRODUCT USED FOR UNKNOWN INDICATION
     Dosage: UNK
  2. RENITEC [Concomitant]
     Indication: PRODUCT USED FOR UNKNOWN INDICATION
     Dosage: UNK
  3. SIMVASTIN [Concomitant]
     Active Substance: SIMVASTATIN
     Indication: PRODUCT USED FOR UNKNOWN INDICATION
     Dosage: UNK
  4. ALBYL-E [Concomitant]
     Active Substance: ASPIRIN\MAGNESIUM OXIDE
     Indication: PRODUCT USED FOR UNKNOWN INDICATION
     Dosage: UNK
  5. DUODART [Suspect]
     Active Substance: DUTASTERIDE\TAMSULOSIN
     Indication: PROSTATOMEGALY
     Dosage: UNK
     Dates: start: 20141117, end: 20150201
  6. GLIMEPIRID [Concomitant]
     Active Substance: GLIMEPIRIDE
     Indication: PRODUCT USED FOR UNKNOWN INDICATION
     Dosage: UNK
  7. METOPROLOL TARTRATE. [Concomitant]
     Active Substance: METOPROLOL TARTRATE
     Indication: PRODUCT USED FOR UNKNOWN INDICATION
     Dosage: UNK

REACTIONS (8)
  - Abdominal distension [Unknown]
  - Weight decreased [Unknown]
  - Gastric cancer [Fatal]
  - Oesophageal carcinoma [Fatal]
  - Abdominal discomfort [Unknown]
  - Gastrointestinal disorder [Unknown]
  - Decreased appetite [Unknown]
  - Metastases to liver [Unknown]

NARRATIVE: CASE EVENT DATE: 20141207
